FAERS Safety Report 4916701-2 (Version None)
Quarter: 2006Q1

REPORT INFORMATION
  Report Type: 
  Country: None (occurrence: None)
  Receive Date: 20060113
  Receipt Date: 20051012
  Transmission Date: 20060701
  Serious: No
  Sender: FDA-Public Use
  Company Number: 2005SP003484

PATIENT
  Sex: Female

DRUGS (1)
  1. LUNESTA [Suspect]
     Dosage: ORAL
     Route: 048
     Dates: start: 20050101, end: 20050101

REACTIONS (5)
  - ABDOMINAL DISCOMFORT [None]
  - BLADDER DISCOMFORT [None]
  - DYSGEUSIA [None]
  - DYSPEPSIA [None]
  - PARADOXICAL DRUG REACTION [None]
